FAERS Safety Report 23915787 (Version 1)
Quarter: 2024Q2

REPORT INFORMATION
  Report Type: Spontaneous
  Country: FR (occurrence: FR)
  Receive Date: 20240529
  Receipt Date: 20240529
  Transmission Date: 20240715
  Serious: Yes (Death)
  Sender: FDA-Public Use
  Company Number: None

PATIENT
  Age: 79 Year
  Sex: Female
  Weight: 78.8 kg

DRUGS (1)
  1. PROPOFOL [Suspect]
     Active Substance: PROPOFOL
     Indication: Medication error
     Route: 042
     Dates: start: 20240406, end: 20240406

REACTIONS (3)
  - Death [Fatal]
  - Incorrect dose administered [Fatal]
  - Dose calculation error [Fatal]

NARRATIVE: CASE EVENT DATE: 20240406
